FAERS Safety Report 11927306 (Version 1)
Quarter: 2016Q1

REPORT INFORMATION
  Report Type: Spontaneous
  Country: US (occurrence: US)
  Receive Date: 20160119
  Receipt Date: 20160119
  Transmission Date: 20160526
  Serious: No
  Sender: FDA-Public Use
  Company Number: US-009507513-1601USA004812

PATIENT
  Sex: Female

DRUGS (1)
  1. HYZAAR [Suspect]
     Active Substance: HYDROCHLOROTHIAZIDE\LOSARTAN POTASSIUM
     Indication: BLOOD PRESSURE ABNORMAL
     Dosage: UNK
     Route: 048

REACTIONS (4)
  - Somnolence [Unknown]
  - Back pain [Unknown]
  - Headache [Unknown]
  - Eye pain [Unknown]
